FAERS Safety Report 8052876-7 (Version None)
Quarter: 2012Q1

REPORT INFORMATION
  Report Type: 
  Country: None (occurrence: None)
  Receive Date: 20120103
  Receipt Date: 20100716
  Transmission Date: 20120608
  Serious: Yes (Death)
  Sender: FDA-Public Use
  Company Number: 200610049

PATIENT
  Age: 52 Year
  Sex: Male

DRUGS (3)
  1. CORISON (CORTISONE ACETATE) [Concomitant]
  2. DIBONDRIN (DIPHENHYDRAMINE HYDROCHLORIDE) [Concomitant]
  3. BERINERT [Suspect]
     Indication: HEREDITARY ANGIOEDEMA
     Dosage: 500 IU, DAILY DOSE QUANTITIY: 500, DAILY DOSE UNIT: IU
     Route: 042
     Dates: start: 20060224

REACTIONS (5)
  - SUBARACHNOID HAEMORRHAGE [None]
  - ENCEPHALOMALACIA [None]
  - BRAIN STEM HAEMORRHAGE [None]
  - BASILAR ARTERY THROMBOSIS [None]
  - BRAIN OEDEMA [None]
